FAERS Safety Report 6146837-2 (Version None)
Quarter: 2009Q2

REPORT INFORMATION
  Report Type: 
  Country: None (occurrence: None)
  Receive Date: 20090407
  Receipt Date: 20090325
  Transmission Date: 20091009
  Serious: Yes (Disabling)
  Sender: FDA-Public Use
  Company Number: JP-ABBOTT-09P-087-0566432-00

PATIENT
  Age: 77 Year
  Sex: Male

DRUGS (7)
  1. LEUPLIN SR FOR INJECTION 11.25 MG [Suspect]
     Indication: PROSTATE CANCER STAGE IV
     Route: 058
     Dates: start: 20070420, end: 20071228
  2. LEUPLIN SR FOR INJECTION 11.25 MG [Suspect]
     Dates: start: 20070125, end: 20070323
  3. CASODEX [Concomitant]
     Indication: PROSTATE CANCER STAGE IV
     Route: 048
     Dates: end: 20080226
  4. LENDORMIN [Concomitant]
     Indication: INSOMNIA
     Route: 048
  5. GASTER [Concomitant]
     Indication: GASTRITIS
     Route: 048
  6. HUMULIN R [Concomitant]
     Indication: DIABETES MELLITUS
     Route: 058
     Dates: start: 20080208, end: 20080219
  7. SENNOSIDE A+B CALCIUM [Concomitant]
     Indication: CONSTIPATION
     Route: 048
     Dates: start: 20080116, end: 20080207

REACTIONS (4)
  - GAIT DISTURBANCE [None]
  - METASTASES TO CENTRAL NERVOUS SYSTEM [None]
  - URINARY INCONTINENCE [None]
  - VISUAL ACUITY REDUCED [None]
